FAERS Safety Report 7529721-9 (Version None)
Quarter: 2011Q2

REPORT INFORMATION
  Report Type: 
  Country: None (occurrence: None)
  Receive Date: 20110607
  Receipt Date: 20110530
  Transmission Date: 20111010
  Serious: Yes (Other)
  Sender: FDA-Public Use
  Company Number: B0723609A

PATIENT
  Sex: Male
  Weight: 65 kg

DRUGS (4)
  1. ZOVIRAX [Concomitant]
     Dosage: 750MG PER DAY
     Route: 048
     Dates: start: 20100810, end: 20100826
  2. DIFLUCAN [Concomitant]
     Dosage: 100MG PER DAY
     Route: 048
     Dates: start: 20100811, end: 20100826
  3. ALKERAN [Suspect]
     Indication: STEM CELL TRANSPLANT
     Dosage: 80MGM2 PER DAY
     Route: 042
     Dates: start: 20100813, end: 20100814
  4. LEVOFLOXACIN [Concomitant]
     Dosage: 400MG PER DAY
     Route: 048
     Dates: start: 20100811, end: 20100826

REACTIONS (1)
  - STAPHYLOCOCCAL SEPSIS [None]
